FAERS Safety Report 8282429 (Version 2)
Quarter: 2012Q4

REPORT INFORMATION
  Report Type: 
  Country: FR (occurrence: FR)
  Receive Date: 20111209
  Receipt Date: 20120920
  Transmission Date: 20130627
  Serious: Yes (Other)
  Sender: FDA-Public Use
  Company Number: FR-PFIZER INC-2011295514

PATIENT
  Sex: Male

DRUGS (1)
  1. BENEFIX [Suspect]
     Dosage: unknown

REACTIONS (1)
  - Hypersensitivity [Unknown]
